FAERS Safety Report 4318684-5 (Version None)
Quarter: 2004Q1

REPORT INFORMATION
  Report Type: 
  Country: None (occurrence: None)
  Receive Date: 20040318
  Receipt Date: 20011002
  Transmission Date: 20041129
  Serious: Yes (Death, Other)
  Sender: FDA-Public Use
  Company Number: US-BRISTOL-MYERS SQUIBB COMPANY-11030103

PATIENT
  Sex: Female

DRUGS (2)
  1. STADOL [Suspect]
     Indication: MIGRAINE
     Dosage: DURATION: MORE THAN 3 YEARS
     Route: 045
  2. STADOL [Suspect]
     Indication: MIGRAINE
     Dosage: ROUTE OF ADMINISTRATION:  IM AND IV  DURATION: MORE THAN 3 YEARS
     Route: 030

REACTIONS (8)
  - ABORTION SPONTANEOUS [None]
  - COMPLICATIONS OF MATERNAL EXPOSURE TO THERAPEUTIC DRUGS [None]
  - DEPENDENCE [None]
  - DRUG WITHDRAWAL SYNDROME [None]
  - FORCEPS DELIVERY [None]
  - MATERNAL DRUGS AFFECTING FOETUS [None]
  - MEDICAL DEVICE COMPLICATION [None]
  - PREGNANCY [None]
